FAERS Safety Report 5386820-8 (Version None)
Quarter: 2007Q3

REPORT INFORMATION
  Report Type: 
  Country: None (occurrence: None)
  Receive Date: 20070713
  Receipt Date: 20070703
  Transmission Date: 20080115
  Serious: Yes (Death)
  Sender: FDA-Public Use
  Company Number: US-PFIZER INC-2007020566

PATIENT
  Sex: Male
  Weight: 99.8 kg

DRUGS (4)
  1. SUTENT [Suspect]
     Indication: METASTATIC RENAL CELL CARCINOMA
     Route: 048
     Dates: start: 20060525, end: 20061201
  2. IRBESARTAN [Concomitant]
  3. HYDROCHLOROTHIAZIDE [Concomitant]
  4. ALPRAZOLAM [Concomitant]

REACTIONS (8)
  - ALOPECIA [None]
  - BURNING SENSATION [None]
  - DIARRHOEA [None]
  - FATIGUE [None]
  - HAEMORRHAGE INTRACRANIAL [None]
  - HAIR COLOUR CHANGES [None]
  - HYPERSENSITIVITY [None]
  - SKIN EXFOLIATION [None]
